FAERS Safety Report 7961107-5 (Version None)
Quarter: 2011Q4

REPORT INFORMATION
  Report Type: 
  Country: None (occurrence: None)
  Receive Date: 20111207
  Receipt Date: 20111128
  Transmission Date: 20120403
  Serious: Yes (Hospitalization)
  Sender: FDA-Public Use
  Company Number: US-US-EMD SERONO, INC.-7091430

PATIENT
  Sex: Female
  Weight: 64 kg

DRUGS (1)
  1. REBIF [Suspect]
     Indication: MULTIPLE SCLEROSIS
     Route: 058
     Dates: start: 20100413

REACTIONS (9)
  - INJECTION SITE ERYTHEMA [None]
  - MEMORY IMPAIRMENT [None]
  - PYREXIA [None]
  - DECREASED APPETITE [None]
  - HYPOAESTHESIA [None]
  - VISUAL FIELD DEFECT [None]
  - VOMITING [None]
  - CENTRAL NERVOUS SYSTEM LESION [None]
  - HEADACHE [None]
